FAERS Safety Report 21849228 (Version 1)
Quarter: 2023Q1

REPORT INFORMATION
  Report Type: Spontaneous
  Country: US (occurrence: None)
  Receive Date: 20230111
  Receipt Date: 20230111
  Transmission Date: 20230418
  Serious: Yes (Hospitalization)
  Sender: FDA-Public Use
  Company Number: None

PATIENT
  Sex: Female
  Weight: 89 kg

DRUGS (3)
  1. TAXOL [Suspect]
     Active Substance: PACLITAXEL
  2. PERTUZUMAB [Concomitant]
     Active Substance: PERTUZUMAB
  3. HERCEPTIN [Concomitant]
     Active Substance: TRASTUZUMAB

REACTIONS (9)
  - Diarrhoea [None]
  - Asthenia [None]
  - Drug ineffective [None]
  - Dysuria [None]
  - Pelvic pain [None]
  - Skin abrasion [None]
  - Perineal disorder [None]
  - Fungal infection [None]
  - Urinary tract infection [None]

NARRATIVE: CASE EVENT DATE: 20230109
